FAERS Safety Report 6841268-1 (Version None)
Quarter: 2010Q3

REPORT INFORMATION
  Report Type: 
  Country: None (occurrence: None)
  Receive Date: 20100714
  Receipt Date: 20070629
  Transmission Date: 20110219
  Serious: No
  Sender: FDA-Public Use
  Company Number: US-PFIZER INC-2007055540

PATIENT
  Sex: Female
  Weight: 65.909 kg

DRUGS (4)
  1. CHANTIX [Suspect]
     Indication: SMOKING CESSATION THERAPY
     Route: 048
     Dates: start: 20070616
  2. ASPIRIN [Suspect]
     Indication: HEADACHE
     Dates: start: 20070628
  3. SYNTHROID [Concomitant]
  4. PROZAC [Concomitant]

REACTIONS (5)
  - HEADACHE [None]
  - LETHARGY [None]
  - MALAISE [None]
  - NAUSEA [None]
  - VOMITING [None]
